FAERS Safety Report 25755385 (Version 3)
Quarter: 2025Q3

REPORT INFORMATION
  Report Type: Report from Study
  Country: US (occurrence: US)
  Receive Date: 20250903
  Receipt Date: 20250930
  Transmission Date: 20251021
  Serious: No
  Sender: MALLINCKRODT
  Company Number: US-MALLINCKRODT-MNK202504950

PATIENT
  Age: 54 Year
  Sex: Female
  Weight: 150 kg

DRUGS (1)
  1. CORTICOTROPIN [Suspect]
     Active Substance: CORTICOTROPIN
     Indication: Rheumatoid arthritis
     Route: 058
     Dates: start: 20250717

REACTIONS (10)
  - Blood blister [Unknown]
  - Pain [Unknown]
  - Neuralgia [Unknown]
  - Contusion [Unknown]
  - Injection site bruising [Unknown]
  - Injection site erythema [Unknown]
  - Malaise [Unknown]
  - Injection site discharge [Unknown]
  - Drug ineffective [Unknown]
  - Wrong technique in product usage process [Unknown]

NARRATIVE: CASE EVENT DATE: 20250101
